FAERS Safety Report 25191503 (Version 4)
Quarter: 2025Q2

REPORT INFORMATION
  Report Type: Report from Study
  Country: CA (occurrence: CA)
  Receive Date: 20250414
  Receipt Date: 20250528
  Transmission Date: 20250716
  Serious: Yes (Other)
  Sender: SANDOZ
  Company Number: CA-002147023-NVSC2023CA031890

PATIENT
  Age: 55 Year
  Sex: Female

DRUGS (3)
  1. ADALIMUMAB [Suspect]
     Active Substance: ADALIMUMAB
     Indication: Ankylosing spondylitis
     Dosage: 40 MG, QW, PRE-FILLED SYRINGE
     Route: 058
     Dates: start: 20230126
  2. ADALIMUMAB [Suspect]
     Active Substance: ADALIMUMAB
     Dosage: 40 MG, QW, WEEKLY, PRE-FILLED PEN
     Route: 058
  3. ADALIMUMAB [Suspect]
     Active Substance: ADALIMUMAB
     Route: 065
     Dates: start: 20230208

REACTIONS (10)
  - Hip arthroplasty [Unknown]
  - Pain [Unknown]
  - Eye disorder [Unknown]
  - Eye pain [Recovered/Resolved]
  - Arthralgia [Recovering/Resolving]
  - Peripheral swelling [Unknown]
  - Eye inflammation [Unknown]
  - Pain in extremity [Unknown]
  - Infection [Unknown]
  - Off label use [Unknown]

NARRATIVE: CASE EVENT DATE: 20230126
